FAERS Safety Report 15729070 (Version 5)
Quarter: 2020Q2

REPORT INFORMATION
  Report Type: Spontaneous
  Country: US (occurrence: US)
  Receive Date: 20181217
  Receipt Date: 20200506
  Transmission Date: 20200713
  Serious: Yes (Life-Threatening, Hospitalization, Disabling, Other)
  Sender: FDA-Public Use
  Company Number: US-PFIZER INC-2016441863

PATIENT
  Age: 63 Year
  Sex: Female
  Weight: 90 kg

DRUGS (5)
  1. LYRICA [Suspect]
     Active Substance: PREGABALIN
     Indication: GAIT DISTURBANCE
     Dosage: 75 MG, 1X/DAY
     Route: 048
  2. LYRICA [Suspect]
     Active Substance: PREGABALIN
     Indication: MYALGIA
     Dosage: 50 MG, 2X/DAY
     Dates: start: 2006
  3. LYRICA [Suspect]
     Active Substance: PREGABALIN
     Indication: NEUROPATHY PERIPHERAL
     Dosage: 75 MG, 2X/DAY
     Route: 048
  4. LYRICA [Suspect]
     Active Substance: PREGABALIN
     Indication: FIBROMYALGIA
  5. LYRICA [Suspect]
     Active Substance: PREGABALIN
     Indication: POLYNEUROPATHY

REACTIONS (9)
  - Cerebrovascular accident [Recovered/Resolved with Sequelae]
  - Pupillary disorder [Unknown]
  - Diplopia [Unknown]
  - Dysgraphia [Unknown]
  - Drug hypersensitivity [Unknown]
  - IIIrd nerve paralysis [Unknown]
  - Mental impairment [Unknown]
  - Intentional product misuse [Unknown]
  - Amnesia [Unknown]

NARRATIVE: CASE EVENT DATE: 20150317
